FAERS Safety Report 16312086 (Version 1)
Quarter: 2019Q2

REPORT INFORMATION
  Report Type: Spontaneous
  Country: US (occurrence: US)
  Receive Date: 20190515
  Receipt Date: 20190515
  Transmission Date: 20190711
  Serious: No
  Sender: FDA-Public Use
  Company Number: US-009507513-1904USA008772

PATIENT
  Age: 70 Year
  Sex: Female

DRUGS (2)
  1. PERMETHRIN. [Concomitant]
     Active Substance: PERMETHRIN
     Indication: SOMATIC DELUSION
  2. STROMECTOL [Suspect]
     Active Substance: IVERMECTIN
     Indication: SOMATIC DELUSION
     Route: 048

REACTIONS (1)
  - Product use in unapproved therapeutic environment [Unknown]
